FAERS Safety Report 9490093 (Version 1)
Quarter: 2013Q3

REPORT INFORMATION
  Report Type: Spontaneous
  Country: US (occurrence: US)
  Receive Date: 20130829
  Receipt Date: 20130829
  Transmission Date: 20140515
  Serious: Yes (Life-Threatening, Hospitalization)
  Sender: FDA-Public Use
  Company Number: US-MYLANLABS-2013S1018790

PATIENT
  Age: 65 Year
  Sex: Female

DRUGS (24)
  1. MOXIFLOXACIN [Suspect]
     Indication: UPPER RESPIRATORY TRACT INFECTION
     Dosage: 400MG DAILY
     Route: 065
  2. LISINOPRIL [Suspect]
     Dosage: 40MG DAILY
     Route: 065
  3. ASPIRIN [Suspect]
     Indication: TRANSIENT ISCHAEMIC ATTACK
     Dosage: 81MG DAILY; LATER RECEIVED 325MG DAILY
     Route: 065
  4. ASPIRIN [Suspect]
     Indication: TRANSIENT ISCHAEMIC ATTACK
     Dosage: 325MG DAILY
     Route: 065
  5. IODIXANOL [Suspect]
     Indication: COMPUTERISED TOMOGRAM
     Route: 065
  6. IBUPROFEN [Suspect]
     Dosage: AS NEEDED
     Route: 065
  7. AMLODIPINE [Concomitant]
     Dosage: 5MG DAILY
     Route: 065
  8. METOPROLOL TARTRATE [Concomitant]
     Route: 065
  9. HYDROCHLOROTHIAZIDE [Concomitant]
     Dosage: 25MG DAILY
     Route: 065
  10. SIMVASTATIN [Concomitant]
     Dosage: 40MG DAILY; INCREASED TO 80MG DAILY
     Route: 065
  11. GLIPIZIDE [Concomitant]
     Dosage: BEFORE BREAKFAST
     Route: 065
  12. BUPROPION [Concomitant]
     Dosage: 150MG DAILY
     Route: 065
  13. ALPRAZOLAM [Concomitant]
     Route: 065
  14. METHOCARBAMOL [Concomitant]
     Dosage: 500MG DAILY
     Route: 065
  15. SALBUTAMOL [Concomitant]
     Dosage: 2 PUFFS EVERY 6H AS NEEDED
     Route: 055
  16. PREDNISONE [Concomitant]
     Indication: UPPER RESPIRATORY TRACT INFECTION
     Dosage: DOSE PACK
     Route: 065
  17. NALOXONE [Concomitant]
     Route: 065
  18. FLUMAZENIL [Concomitant]
     Dosage: 2 DOSES
     Route: 065
  19. CAL SUP+VITAMIN D [Concomitant]
     Dosage: DAILY
     Route: 065
  20. BENZONATATE [Concomitant]
     Dosage: AS NEEDED
     Route: 065
  21. FOLIC ACID [Concomitant]
     Dosage: 1MG DAILY
     Route: 065
  22. LORAZEPAM [Concomitant]
     Indication: NUCLEAR MAGNETIC RESONANCE IMAGING
     Route: 065
  23. LORAZEPAM [Concomitant]
     Indication: SOMNOLENCE
     Route: 065
  24. SIMVASTATIN [Concomitant]
     Dosage: 80MG DAILY
     Route: 065

REACTIONS (3)
  - Angioedema [Recovering/Resolving]
  - Respiratory distress [Recovering/Resolving]
  - Hypotension [Recovering/Resolving]
